FAERS Safety Report 16342893 (Version 1)
Quarter: 2019Q3

REPORT INFORMATION
  Report Type: Spontaneous
  Country: US (occurrence: US)
  Receive Date: 20190521
  Receipt Date: 20190521
  Transmission Date: 20191004
  Serious: No
  Sender: FDA-Public Use
  Company Number: None

PATIENT
  Age: 29 Year
  Sex: Female

DRUGS (8)
  1. PREDNISONE. [Concomitant]
     Active Substance: PREDNISONE
  2. FOLLISTIM AQ [Suspect]
     Active Substance: FOLLITROPIN
     Indication: INFERTILITY FEMALE
     Route: 058
     Dates: start: 20190424
  3. PROGESTERONE. [Concomitant]
     Active Substance: PROGESTERONE
  4. MENOPUR [Concomitant]
     Active Substance: FOLLITROPIN\LUTEINIZING HORMONE
  5. OVIDREL [Concomitant]
     Active Substance: CHORIOGONADOTROPIN ALFA
  6. HCG [Concomitant]
     Active Substance: GONADOTROPHIN, CHORIONIC
  7. DOXYCYCLINE HYCLATE. [Concomitant]
     Active Substance: DOXYCYCLINE HYCLATE
  8. GANIRELIX [Suspect]
     Active Substance: GANIRELIX
     Indication: INFERTILITY FEMALE
     Route: 058
     Dates: start: 20190424

REACTIONS (2)
  - Back pain [None]
  - Headache [None]

NARRATIVE: CASE EVENT DATE: 20190520
